FAERS Safety Report 14013053 (Version 2)
Quarter: 2017Q4

REPORT INFORMATION
  Report Type: Spontaneous
  Country: CZ (occurrence: CZ)
  Receive Date: 20170926
  Receipt Date: 20171103
  Transmission Date: 20180321
  Serious: Yes (Other)
  Sender: FDA-Public Use
  Company Number: CZ-PFIZER INC-2017412163

PATIENT
  Age: 66 Year
  Sex: Female
  Weight: 65 kg

DRUGS (6)
  1. NEBILET [Suspect]
     Active Substance: NEBIVOLOL
     Dosage: 1/2 DF, 1X/DAY IN THE MORNING
     Dates: start: 201610
  2. SUTENT [Suspect]
     Active Substance: SUNITINIB MALATE
     Indication: RENAL CANCER
     Dosage: 37.5 MG (25 + 12.5 MG), CYCLIC IN  2 + 1 REGIMEN (2 WEEKS 37.5 MG DAILY + 1 WEEK WITH NO TREATMENT)
     Route: 048
     Dates: start: 20160809, end: 20161026
  3. BONEFOS [Suspect]
     Active Substance: CLODRONATE DISODIUM
     Indication: MINERAL SUPPLEMENTATION
     Dosage: 1600 MG, DAILY
     Dates: end: 20170220
  4. CALCIUM [Concomitant]
     Active Substance: CALCIUM
     Indication: MINERAL SUPPLEMENTATION
     Dosage: UNK
     Dates: end: 20170516
  5. NEBILET [Suspect]
     Active Substance: NEBIVOLOL
     Dosage: 1/4 DF, 1X/DAY IN THE MORNING
  6. NEUROL /00595201/ [Concomitant]
     Active Substance: ALPRAZOLAM
     Dosage: 0.25 MG, AS NEEDED (USES ABOUT 5X/MONTH)

REACTIONS (9)
  - Fatigue [Recovered/Resolved]
  - Jaundice [Recovered/Resolved]
  - Cholelithiasis [Unknown]
  - Weight decreased [Recovered/Resolved]
  - General physical health deterioration [Unknown]
  - Diarrhoea [Recovered/Resolved]
  - Thrombocytopenia [Unknown]
  - Decreased appetite [Recovered/Resolved]
  - Eye swelling [Recovered/Resolved]

NARRATIVE: CASE EVENT DATE: 20160823
